FAERS Safety Report 10264720 (Version 2)
Quarter: 2014Q3

REPORT INFORMATION
  Report Type: Report from Study
  Country: JP (occurrence: JP)
  Receive Date: 20140627
  Receipt Date: 20140820
  Transmission Date: 20150326
  Serious: Yes (Death)
  Sender: FDA-Public Use
  Company Number: JP-ASTELLAS-2014JP011068

PATIENT
  Age: 85 Year
  Sex: Male
  Weight: 53 kg

DRUGS (4)
  1. SUMIFERON                          /05982601/ [Concomitant]
     Indication: METASTASES TO BONE
  2. SUMIFERON                          /05982601/ [Concomitant]
     Indication: METASTASES TO LUNG
  3. SUMIFERON                          /05982601/ [Concomitant]
     Indication: RENAL CANCER METASTATIC
     Route: 065
     Dates: end: 20140212
  4. MIRABEGRON [Suspect]
     Active Substance: MIRABEGRON
     Indication: HYPERTONIC BLADDER
     Route: 048
     Dates: start: 20140108, end: 20140212

REACTIONS (1)
  - Pneumonia [Fatal]

NARRATIVE: CASE EVENT DATE: 20140207
